FAERS Safety Report 5648544-9 (Version None)
Quarter: 2008Q1

REPORT INFORMATION
  Report Type: 
  Country: None (occurrence: None)
  Receive Date: 20080229
  Receipt Date: 20080213
  Transmission Date: 20080703
  Serious: Yes (Disabling)
  Sender: FDA-Public Use
  Company Number: S08-UKI-00695-01

PATIENT
  Age: 64 Year
  Sex: Male
  Weight: 63 kg

DRUGS (8)
  1. CIPRAMIL                       (CITALOIPRAM HYDROBROMIDE) [Suspect]
     Indication: DEPRESSION
  2. ASPIRIN [Concomitant]
  3. BENDROFLUMETHIAZIDE [Concomitant]
  4. CO-DYDRAMOL  (PARAMOL-118) [Concomitant]
  5. RAMIPRIL [Concomitant]
  6. HYDROXOCOBALAMIN [Concomitant]
  7. TIBOLONE [Concomitant]
  8. VERAPAMIL [Concomitant]

REACTIONS (3)
  - GAIT DISTURBANCE [None]
  - MUSCULAR WEAKNESS [None]
  - PAIN [None]
